FAERS Safety Report 5731872-6 (Version None)
Quarter: 2008Q2

REPORT INFORMATION
  Report Type: 
  Country: None (occurrence: None)
  Receive Date: 20080508
  Receipt Date: 20080428
  Transmission Date: 20081010
  Serious: Yes (Death, Other)
  Sender: FDA-Public Use
  Company Number: HQWYE190905JAN06

PATIENT
  Sex: Female

DRUGS (3)
  1. PREMPRO [Suspect]
     Indication: HORMONE REPLACEMENT THERAPY
  2. PROVERA [Suspect]
  3. PREMARIN [Suspect]

REACTIONS (5)
  - BREAST CANCER METASTATIC [None]
  - METASTASES TO MUSCLE [None]
  - METASTASES TO SOFT TISSUE [None]
  - PNEUMONIA [None]
  - PULMONARY EMBOLISM [None]
